FAERS Safety Report 22007117 (Version 1)
Quarter: 2023Q1

REPORT INFORMATION
  Report Type: Spontaneous
  Country: FR (occurrence: FR)
  Receive Date: 20230217
  Receipt Date: 20230217
  Transmission Date: 20230418
  Serious: Yes (Hospitalization)
  Sender: FDA-Public Use
  Company Number: FR-ZAMBON SWITZERLAND LTD.-2023FR000011

PATIENT

DRUGS (7)
  1. FOSFOMYCIN TROMETHAMINE [Suspect]
     Active Substance: FOSFOMYCIN TROMETHAMINE
     Indication: Cystitis bacterial
     Dosage: 1 DF, SINGLE
     Route: 048
     Dates: start: 20221017, end: 20221017
  2. INDAPAMIDE\PERINDOPRIL ARGININE [Suspect]
     Active Substance: INDAPAMIDE\PERINDOPRIL ARGININE
     Indication: Hypertension
     Dosage: UNK
     Route: 048
     Dates: start: 2016, end: 20221201
  3. CRESTOR [Suspect]
     Active Substance: ROSUVASTATIN CALCIUM
     Indication: Dyslipidaemia
     Dosage: UNK
     Route: 048
     Dates: start: 2016, end: 20221124
  4. LACTULOSE\PARAFFIN [Concomitant]
     Active Substance: LACTULOSE\PARAFFIN
     Indication: Constipation
     Dosage: 1 DF
     Route: 048
     Dates: end: 20221201
  5. ASPIRIN DL-LYSINE [Concomitant]
     Active Substance: ASPIRIN DL-LYSINE
     Indication: Cardiovascular event prophylaxis
     Dosage: 100 MG, DAILY
     Route: 048
     Dates: end: 20221201
  6. CALCIFEDIOL [Concomitant]
     Active Substance: CALCIFEDIOL
     Indication: Vitamin supplementation
     Dosage: 15 MG/100 ML DROP ORAL SOLUTION
     Route: 048
     Dates: end: 20221201
  7. DOLIPRANE [Concomitant]
     Active Substance: ACETAMINOPHEN
     Indication: Pain
     Dosage: 1000 MG, DAILY
     Route: 048
     Dates: end: 20221124

REACTIONS (1)
  - Autoimmune hepatitis [Recovering/Resolving]

NARRATIVE: CASE EVENT DATE: 20221115
